FAERS Safety Report 16748955 (Version 1)
Quarter: 2019Q3

REPORT INFORMATION
  Report Type: Spontaneous
  Country: US (occurrence: US)
  Receive Date: 20190828
  Receipt Date: 20190828
  Transmission Date: 20191005
  Serious: No
  Sender: FDA-Public Use
  Company Number: US-DRREDDYS-USA/USA/19/0113419

PATIENT
  Age: 58 Year
  Sex: Male
  Weight: 87.75 kg

DRUGS (2)
  1. CRESTOR [Concomitant]
     Active Substance: ROSUVASTATIN CALCIUM
     Indication: BLOOD CHOLESTEROL INCREASED
  2. ALLOPURINOL 100 MG [Suspect]
     Active Substance: ALLOPURINOL
     Indication: NEPHROLITHIASIS
     Route: 048
     Dates: start: 20190412

REACTIONS (1)
  - Dermatitis allergic [Not Recovered/Not Resolved]

NARRATIVE: CASE EVENT DATE: 20190804
